FAERS Safety Report 4865866-X (Version None)
Quarter: 2005Q4

REPORT INFORMATION
  Report Type: 
  Country: None (occurrence: None)
  Receive Date: 20051220
  Receipt Date: 20051212
  Transmission Date: 20060501
  Serious: Yes (Life-Threatening, Hospitalization)
  Sender: FDA-Public Use
  Company Number: 2005160742

PATIENT
  Age: 54 Year
  Sex: Male

DRUGS (2)
  1. NORVASC [Suspect]
     Indication: ILL-DEFINED DISORDER
  2. NIZATIDINE [Suspect]
     Indication: ILL-DEFINED DISORDER

REACTIONS (10)
  - BRADYCARDIA [None]
  - CARDIO-RESPIRATORY ARREST [None]
  - HAEMODIALYSIS [None]
  - HYPOTENSION [None]
  - HYPOTHERMIA [None]
  - ILEUS PARALYTIC [None]
  - LOSS OF CONSCIOUSNESS [None]
  - METABOLIC ACIDOSIS [None]
  - NODAL RHYTHM [None]
  - OVERDOSE [None]
